FAERS Safety Report 7076114-7 (Version None)
Quarter: 2010Q4

REPORT INFORMATION
  Report Type: 
  Country: None (occurrence: None)
  Receive Date: 20101021
  Receipt Date: 20101006
  Transmission Date: 20110411
  Serious: Yes (Other)
  Sender: FDA-Public Use
  Company Number: AUR-APL-2010-02489

PATIENT
  Age: 32 Year
  Sex: Female

DRUGS (1)
  1. AMOXICILLIN [Suspect]

REACTIONS (2)
  - ANGIOEDEMA [None]
  - RASH MACULO-PAPULAR [None]
